FAERS Safety Report 10883471 (Version 1)
Quarter: 2015Q1

REPORT INFORMATION
  Report Type: Report from Study
  Country: BR (occurrence: BR)
  Receive Date: 20150303
  Receipt Date: 20150303
  Transmission Date: 20150721
  Serious: Yes (Other)
  Sender: FDA-Public Use
  Company Number: BR-ROCHE-1546028

PATIENT
  Sex: Female

DRUGS (7)
  1. MABTHERA [Suspect]
     Active Substance: RITUXIMAB
     Indication: RHEUMATOID ARTHRITIS
     Route: 042
     Dates: start: 201407
  2. CAPTOPRIL. [Concomitant]
     Active Substance: CAPTOPRIL
  3. METHOTREXATE [Concomitant]
     Active Substance: METHOTREXATE
  4. HYDROCHLOROTHIAZIDE. [Concomitant]
     Active Substance: HYDROCHLOROTHIAZIDE
  5. PREDNISONE. [Concomitant]
     Active Substance: PREDNISONE
  6. IBUPROFEN. [Concomitant]
     Active Substance: IBUPROFEN
  7. ARCOXIA [Concomitant]
     Active Substance: ETORICOXIB

REACTIONS (2)
  - Pleural effusion [Recovering/Resolving]
  - Intestinal perforation [Not Recovered/Not Resolved]
